FAERS Safety Report 4934228-9 (Version None)
Quarter: 2006Q1

REPORT INFORMATION
  Report Type: 
  Country: None (occurrence: None)
  Receive Date: 20060303
  Receipt Date: 20060228
  Transmission Date: 20060701
  Serious: Yes (Death, Hospitalization)
  Sender: FDA-Public Use
  Company Number: T06-USA-00824-01

PATIENT
  Age: 86 Year
  Sex: Female
  Weight: 48.9885 kg

DRUGS (5)
  1. MEMANTINE HCL [Suspect]
     Indication: DEMENTIA ALZHEIMER'S TYPE
     Dosage: 28 MG QD PO
     Route: 048
     Dates: start: 20051101, end: 20060214
  2. MIRAPEXIN (PRAMIPEXOLE DIHYDROCHLORIDE) [Concomitant]
  3. CYMBALTA [Concomitant]
  4. ACIPHEX [Concomitant]
  5. SINEMET [Concomitant]

REACTIONS (2)
  - LUNG DISORDER [None]
  - PULMONARY EMBOLISM [None]
